FAERS Safety Report 11797130 (Version 2)
Quarter: 2015Q4

REPORT INFORMATION
  Report Type: Spontaneous
  Country: FR (occurrence: FR)
  Receive Date: 20151203
  Receipt Date: 20151203
  Transmission Date: 20160305
  Serious: Yes (Death)
  Sender: FDA-Public Use
  Company Number: FR-CELGENE-FRA-2015116315

PATIENT

DRUGS (2)
  1. AZACITIDINE INJECTABLE [Suspect]
     Active Substance: AZACITIDINE
     Indication: MYELODYSPLASTIC SYNDROME
     Dosage: 75 MILLIGRAM/SQ. METER
     Route: 058
  2. VORINOSTAT [Suspect]
     Active Substance: VORINOSTAT
     Indication: MYELODYSPLASTIC SYNDROME
     Route: 065

REACTIONS (8)
  - Infection [Unknown]
  - Gastrointestinal toxicity [Unknown]
  - Drug intolerance [Unknown]
  - No therapeutic response [Unknown]
  - Fatigue [Unknown]
  - Thrombocytopenia [Unknown]
  - Cytopenia [Fatal]
  - Myelodysplastic syndrome [Unknown]
